FAERS Safety Report 20541354 (Version 1)
Quarter: 2022Q1

REPORT INFORMATION
  Report Type: Spontaneous
  Country: MX (occurrence: MX)
  Receive Date: 20220302
  Receipt Date: 20220302
  Transmission Date: 20220423
  Serious: Yes (Other)
  Sender: FDA-Public Use
  Company Number: MX-BAYER-2021A219580

PATIENT
  Age: 77 Year
  Sex: Female

DRUGS (1)
  1. XARELTO [Suspect]
     Active Substance: RIVAROXABAN
     Indication: Myocardial infarction
     Dosage: 15 MG, QD
     Route: 048

REACTIONS (3)
  - Cerebral disorder [Unknown]
  - Mobility decreased [Unknown]
  - Inappropriate schedule of product administration [Unknown]
